FAERS Safety Report 12531277 (Version 1)
Quarter: 2016Q3

REPORT INFORMATION
  Report Type: Spontaneous
  Country: JP (occurrence: JP)
  Receive Date: 20160706
  Receipt Date: 20160706
  Transmission Date: 20161109
  Serious: Yes (Hospitalization)
  Sender: FDA-Public Use
  Company Number: JP-MEDA-2016070005

PATIENT
  Age: 81 Year
  Sex: Female

DRUGS (15)
  1. LUPRAC [Suspect]
     Active Substance: TORSEMIDE
  2. URAPIDIL 60 MG [Concomitant]
  3. MOSAPRIDE CITRATE HYDRATE 15 MG [Concomitant]
  4. CARVEDILOL. [Suspect]
     Active Substance: CARVEDILOL
  5. PREDNISOLONE 5 MG [Concomitant]
  6. PRAVASTATINE NA [Suspect]
     Active Substance: PRAVASTATIN SODIUM
  7. MAGNESIUM OXIDE. [Suspect]
     Active Substance: MAGNESIUM OXIDE
  8. AMLODIPINE [Suspect]
     Active Substance: AMLODIPINE BESYLATE
  9. LANSOPRAZOLE 30 MG [Concomitant]
     Active Substance: LANSOPRAZOLE
  10. ALFACALCIDOL 0.5 MCG [Concomitant]
  11. DOXAZOSIN [Suspect]
     Active Substance: DOXAZOSIN\DOXAZOSIN MESYLATE
     Indication: RHEUMATOID ARTHRITIS
  12. ASPARA-CA [Suspect]
     Active Substance: CALCIUM ASPARTATE
  13. TANATRIL [Suspect]
     Active Substance: IMIDAPRIL
  14. BUCILLAMINE [Suspect]
     Active Substance: BUCILLAMINE
     Indication: RHEUMATOID ARTHRITIS
  15. BOFUTSUSHOSAN [Suspect]
     Active Substance: HERBALS

REACTIONS (2)
  - Tubulointerstitial nephritis [Recovering/Resolving]
  - Glomerulonephritis membranous [Recovering/Resolving]
